FAERS Safety Report 5567078-3 (Version None)
Quarter: 2007Q4

REPORT INFORMATION
  Report Type: 
  Country: None (occurrence: None)
  Receive Date: 20071219
  Receipt Date: 20060106
  Transmission Date: 20080405
  Serious: Yes (Death)
  Sender: FDA-Public Use
  Company Number: AR-ROCHE-431225

PATIENT
  Age: 30 Year
  Sex: Female

DRUGS (1)
  1. XELODA [Suspect]
     Indication: BREAST CANCER
     Dosage: STRENGTH REPORTED AS 150/500 MG.
     Route: 048
     Dates: start: 20031213, end: 20040101

REACTIONS (2)
  - DEATH [None]
  - MUCOSAL INFLAMMATION [None]
